FAERS Safety Report 8134976-6 (Version None)
Quarter: 2012Q1

REPORT INFORMATION
  Report Type: 
  Country: None (occurrence: None)
  Receive Date: 20120210
  Receipt Date: 20120126
  Transmission Date: 20120608
  Serious: Yes (Hospitalization)
  Sender: FDA-Public Use
  Company Number: 00378388

PATIENT
  Sex: Female

DRUGS (1)
  1. ACETYLCYSTEINE [Suspect]
     Dosage: 600 MG, ONCE, 047
     Dates: start: 20120126

REACTIONS (1)
  - ANAPHYLACTIC SHOCK [None]
